FAERS Safety Report 19518941 (Version 2)
Quarter: 2021Q3

REPORT INFORMATION
  Report Type: Spontaneous
  Country: US (occurrence: US)
  Receive Date: 20210712
  Receipt Date: 20210719
  Transmission Date: 20211014
  Serious: Yes (Other)
  Sender: FDA-Public Use
  Company Number: NVSC2021US152740

PATIENT
  Age: 67 Year
  Sex: Female

DRUGS (8)
  1. OCUFLOX [Suspect]
     Active Substance: OFLOXACIN
     Indication: PREOPERATIVE CARE
     Dosage: UNK
     Route: 065
  2. POVIDONE?IODINE. [Suspect]
     Active Substance: POVIDONE-IODINE
     Indication: ANTIBIOTIC PROPHYLAXIS
     Dosage: UNK
     Route: 061
  3. CYCLOPENTOLATE HYDROCHLORIDE. [Suspect]
     Active Substance: CYCLOPENTOLATE HYDROCHLORIDE
     Indication: PREOPERATIVE CARE
     Dosage: UNK
     Route: 065
  4. BSS [Suspect]
     Active Substance: CALCIUM CHLORIDE\MAGNESIUM CHLORIDE\POTASSIUM CHLORIDE\SODIUM ACETATE\SODIUM CHLORIDE\SODIUM CITRATE
     Indication: CATARACT OPERATION
     Dosage: UNK
     Route: 065
  5. PHENYLEPHRINE [Suspect]
     Active Substance: PHENYLEPHRINE HYDROCHLORIDE
     Indication: PRODUCT USED FOR UNKNOWN INDICATION
     Dosage: UNK
     Route: 065
  6. DUOVISC [Concomitant]
     Active Substance: CHONDROITIN SULFATE SODIUM NOS\HYALURONATE SODIUM
     Indication: PRODUCT USED FOR UNKNOWN INDICATION
     Dosage: UNK
     Route: 065
  7. LIDOCAINE. [Suspect]
     Active Substance: LIDOCAINE
     Indication: APPLICATION SITE ANAESTHESIA
     Dosage: UNK
     Route: 065
  8. TYLENOL [Suspect]
     Active Substance: ACETAMINOPHEN
     Indication: PREOPERATIVE CARE
     Dosage: UNK
     Route: 048

REACTIONS (5)
  - Toxic anterior segment syndrome [Unknown]
  - Hypopyon [Unknown]
  - Aqueous fibrin [Unknown]
  - Eye inflammation [Unknown]
  - Vitritis [Unknown]

NARRATIVE: CASE EVENT DATE: 20210428
